FAERS Safety Report 17363614 (Version 4)
Quarter: 2020Q2

REPORT INFORMATION
  Report Type: Spontaneous
  Country: JP (occurrence: JP)
  Receive Date: 20200203
  Receipt Date: 20200605
  Transmission Date: 20200713
  Serious: Yes (Death, Other)
  Sender: FDA-Public Use
  Company Number: JP-INCYTE CORPORATION-2020IN000963

PATIENT

DRUGS (1)
  1. JAKAVI [Suspect]
     Active Substance: RUXOLITINIB
     Indication: MYELOFIBROSIS
     Dosage: UNK
     Route: 065

REACTIONS (7)
  - Pneumonia aspiration [Fatal]
  - General physical health deterioration [Unknown]
  - Emphysema [Fatal]
  - Diffuse alveolar damage [Fatal]
  - Respiratory failure [Fatal]
  - Haemoptysis [Unknown]
  - Septic shock [Fatal]
